FAERS Safety Report 24799932 (Version 2)
Quarter: 2025Q2

REPORT INFORMATION
  Report Type: Spontaneous
  Country: US (occurrence: US)
  Receive Date: 20250102
  Receipt Date: 20250421
  Transmission Date: 20250717
  Serious: No
  Sender: UCB
  Company Number: US-UCBSA-2024066743

PATIENT
  Sex: Male

DRUGS (1)
  1. NEUPRO [Suspect]
     Active Substance: ROTIGOTINE
     Indication: Restless legs syndrome
     Dates: start: 20230301

REACTIONS (3)
  - Restless legs syndrome [Unknown]
  - Drug ineffective [Unknown]
  - Product adhesion issue [Unknown]
